FAERS Safety Report 7195313-7 (Version None)
Quarter: 2010Q4

REPORT INFORMATION
  Report Type: 
  Country: None (occurrence: None)
  Receive Date: 20101223
  Receipt Date: 20100930
  Transmission Date: 20110411
  Serious: No
  Sender: FDA-Public Use
  Company Number: US-AMGEN-KDL442143

PATIENT

DRUGS (13)
  1. ENBREL [Suspect]
     Indication: PRODUCT USED FOR UNKNOWN INDICATION
     Dosage: 50 MG, QWK
     Route: 058
  2. PROMETHAZINE HYDROCHLORIDE [Concomitant]
     Dosage: 25 MG, UNK
  3. LOMOTIL [Concomitant]
     Dosage: 2.5 MG, UNK
  4. PANADEINE CO [Concomitant]
  5. ELETRIPTAN [Concomitant]
     Dosage: 20 MG, UNK
  6. FUROSEMIDE [Concomitant]
     Dosage: 20 MG, UNK
  7. METHOTREXATE [Concomitant]
     Dosage: 2.5 MG, UNK
  8. PREDNISONE [Concomitant]
     Dosage: 1 MG, UNK
  9. ACETAMINOPHEN AND HYDROCODONE BITARTRATE [Concomitant]
     Dosage: 500 MG, UNK
  10. METHOCARBAMOL [Concomitant]
     Dosage: 500 MG, UNK
  11. TRAMADOL HYDROCHLORIDE [Concomitant]
     Dosage: 50 MG, UNK
  12. FOLIC ACID [Concomitant]
     Dosage: 1 MG, UNK
  13. CALCIUM WITH VITAMIN D [Concomitant]
     Dosage: UNK UNK, UNK

REACTIONS (2)
  - CONDITION AGGRAVATED [None]
  - HOT FLUSH [None]
